FAERS Safety Report 20205448 (Version 1)
Quarter: 2021Q4

REPORT INFORMATION
  Report Type: Spontaneous
  Country: SI (occurrence: None)
  Receive Date: 20211220
  Receipt Date: 20211220
  Transmission Date: 20220303
  Serious: Yes (Death, Other)
  Sender: FDA-Public Use
  Company Number: SI-ROCHE-2977395

PATIENT
  Sex: Female

DRUGS (4)
  1. ATEZOLIZUMAB [Suspect]
     Active Substance: ATEZOLIZUMAB
     Indication: Product used for unknown indication
     Route: 065
  2. BEVACIZUMAB [Suspect]
     Active Substance: BEVACIZUMAB
     Indication: Product used for unknown indication
     Dosage: 15 MG/KG TT EVERY 3 WEEKS
     Route: 065
  3. DEXAMETHASONE [Concomitant]
     Active Substance: DEXAMETHASONE
     Dosage: 1 MG/KG TT
     Route: 042
  4. SORAFENIB [Concomitant]
     Active Substance: SORAFENIB

REACTIONS (8)
  - Pneumonitis [Unknown]
  - Colitis [Recovered/Resolved]
  - Dermatitis [Recovered/Resolved]
  - Skin lesion [Unknown]
  - Peripheral swelling [Unknown]
  - Diarrhoea [Unknown]
  - COVID-19 [Unknown]
  - Death [Fatal]
